FAERS Safety Report 19575101 (Version 1)
Quarter: 2021Q3

REPORT INFORMATION
  Report Type: Spontaneous
  Country: US (occurrence: US)
  Receive Date: 20210716
  Receipt Date: 20210716
  Transmission Date: 20211014
  Serious: Yes (Other)
  Sender: FDA-Public Use
  Company Number: None

PATIENT
  Age: 84 Year
  Sex: Female
  Weight: 122.85 kg

DRUGS (1)
  1. HYDRALAZINE [Suspect]
     Active Substance: HYDRALAZINE HYDROCHLORIDE
     Indication: HYPERTENSION
     Dosage: OTHER FREQUENCY:Q4H;?
     Route: 042
     Dates: start: 20210707, end: 20210708

REACTIONS (5)
  - Atrial fibrillation [None]
  - Hypoaesthesia oral [None]
  - Tremor [None]
  - Tachycardia [None]
  - Feeling abnormal [None]

NARRATIVE: CASE EVENT DATE: 20210708
